FAERS Safety Report 9168370 (Version 1)
Quarter: 2013Q1

REPORT INFORMATION
  Report Type: Spontaneous
  Country: US (occurrence: US)
  Receive Date: 20130318
  Receipt Date: 20130318
  Transmission Date: 20140127
  Serious: No
  Sender: FDA-Public Use
  Company Number: US-PFIZER INC-2013089098

PATIENT
  Sex: Female

DRUGS (3)
  1. LYRICA [Suspect]
     Dosage: UNK, 2X/DAY
  2. CELEBREX [Concomitant]
     Dosage: UNK, 1X/DAY
  3. LORTAB [Concomitant]
     Dosage: UNK, 2X/DAY

REACTIONS (3)
  - Malaise [Unknown]
  - Depression [Unknown]
  - Feeling abnormal [Unknown]
